FAERS Safety Report 7744384-5 (Version None)
Quarter: 2011Q3

REPORT INFORMATION
  Report Type: 
  Country: None (occurrence: None)
  Receive Date: 20110912
  Receipt Date: 20110906
  Transmission Date: 20111222
  Serious: Yes (Other)
  Sender: FDA-Public Use
  Company Number: US-ALLERGAN-0711408US

PATIENT
  Age: 7 Year
  Sex: Male
  Weight: 23.129 kg

DRUGS (3)
  1. BOTULINUM TOXIN TYPE A [Suspect]
     Indication: NERVOUS SYSTEM DISORDER
     Dosage: 900 UNITS, UNK
  2. BOTULINUM TOXIN TYPE A [Suspect]
     Indication: CEREBRAL PALSY
  3. BOTULINUM TOXIN TYPE A [Suspect]
     Indication: MUSCLE SPASTICITY

REACTIONS (1)
  - BOTULISM [None]
